FAERS Safety Report 7753197-X (Version None)
Quarter: 2011Q3

REPORT INFORMATION
  Report Type: 
  Country: None (occurrence: None)
  Receive Date: 20110915
  Receipt Date: 20110914
  Transmission Date: 20111222
  Serious: Yes (Death)
  Sender: FDA-Public Use
  Company Number: PHHY2010NL87112

PATIENT
  Sex: Female
  Weight: 53 kg

DRUGS (11)
  1. SCOPOLAMINE [Concomitant]
     Dosage: 10 MG, 4 TIMES DAILY
  2. NICOTINAMIDE [Concomitant]
     Dosage: 50 MG, ONCE DAILY
  3. ASCAL [Concomitant]
     Dosage: 100 MG, ONCE DAILY
  4. SANDOSTATIN LAR [Suspect]
     Indication: PANCREATIC NEUROENDOCRINE TUMOUR
     Dosage: 20 MG, ONCE PER 4 WEEKS
     Route: 030
     Dates: start: 20090924, end: 20091217
  5. NEXIUM [Concomitant]
     Dosage: 40 MG, QD
  6. DICLOFENAC SODIUM [Concomitant]
     Dosage: 50 MG, TWICE DAILY
  7. PRIMPERAN TAB [Concomitant]
     Dosage: 20 MG, THRICE DAILY
  8. QUESTRAN [Concomitant]
     Dosage: 0.5 BAG DAILY
  9. ACETAMINOPHEN [Concomitant]
     Dosage: 1 G, FOUR TIMES DAILY
  10. GLICLAZIDE [Concomitant]
     Dosage: 80 MG, THRICE DAILY
  11. SANDOSTATIN LAR [Suspect]
     Indication: CARCINOID TUMOUR
     Dosage: 20 MG,ONCE PER 4 WEEKS
     Route: 030
     Dates: start: 20100428, end: 20100721

REACTIONS (2)
  - NEOPLASM MALIGNANT [None]
  - CHOLANGITIS [None]
